FAERS Safety Report 23320174 (Version 1)
Quarter: 2023Q4

REPORT INFORMATION
  Report Type: Spontaneous
  Country: CA (occurrence: CA)
  Receive Date: 20231220
  Receipt Date: 20231220
  Transmission Date: 20240109
  Serious: Yes (Other)
  Sender: FDA-Public Use
  Company Number: CA-HIKMA PHARMACEUTICALS-CA-H14001-23-67945

PATIENT
  Age: 85 Year
  Sex: Female

DRUGS (1)
  1. CEFAZOLIN [Suspect]
     Active Substance: CEFAZOLIN
     Indication: Product used for unknown indication
     Dosage: 1 GRAM, QD
     Route: 065

REACTIONS (2)
  - Cholestatic liver injury [Not Recovered/Not Resolved]
  - Hepatitis [Not Recovered/Not Resolved]
